FAERS Safety Report 6668815-7 (Version None)
Quarter: 2010Q2

REPORT INFORMATION
  Report Type: 
  Country: None (occurrence: None)
  Receive Date: 20100402
  Receipt Date: 20100325
  Transmission Date: 20101027
  Serious: Yes (Hospitalization, Other)
  Sender: FDA-Public Use
  Company Number: 2009SP004403

PATIENT
  Age: 64 Year
  Sex: Female
  Weight: 52 kg

DRUGS (1)
  1. TEMOZOLOMIDE [Suspect]
     Indication: RADIOTHERAPY
     Dosage: 120 MCG; PO
     Route: 048
     Dates: start: 20081101, end: 20090101

REACTIONS (3)
  - ALVEOLITIS [None]
  - PNEUMONITIS [None]
  - PULMONARY EMBOLISM [None]
